FAERS Safety Report 9010171 (Version 1)
Quarter: 2013Q1

REPORT INFORMATION
  Report Type: Spontaneous
  Country: US (occurrence: US)
  Receive Date: 20130110
  Receipt Date: 20130110
  Transmission Date: 20140127
  Serious: Yes (Death)
  Sender: FDA-Public Use
  Company Number: US-SANOFI-AVENTIS-2013SA000209

PATIENT
  Sex: Male

DRUGS (4)
  1. LANTUS SOLOSTAR [Suspect]
     Route: 058
     Dates: end: 2010
  2. SOLOSTAR [Suspect]
     Dates: end: 2010
  3. APIDRA SOLOSTAR [Suspect]
     Route: 058
     Dates: end: 2010
  4. SOLOSTAR [Suspect]
     Dates: end: 2010

REACTIONS (1)
  - Death [Fatal]
